FAERS Safety Report 22332031 (Version 1)
Quarter: 2023Q2

REPORT INFORMATION
  Report Type: Spontaneous
  Country: KR (occurrence: KR)
  Receive Date: 20230517
  Receipt Date: 20230517
  Transmission Date: 20230721
  Serious: Yes (Disabling, Other)
  Sender: FDA-Public Use
  Company Number: KR-002147023-NVSC2023KR111719

PATIENT
  Age: 62 Year
  Sex: Female

DRUGS (8)
  1. BEOVU [Suspect]
     Active Substance: BROLUCIZUMAB-DBLL
     Indication: Neovascular age-related macular degeneration
     Dosage: 6 MG
     Route: 031
     Dates: start: 20220211, end: 20220211
  2. BEOVU [Suspect]
     Active Substance: BROLUCIZUMAB-DBLL
     Dosage: UNK
     Route: 065
     Dates: start: 20220311, end: 20220311
  3. BEOVU [Suspect]
     Active Substance: BROLUCIZUMAB-DBLL
     Dosage: 6 MG
     Route: 031
     Dates: start: 20220408, end: 20220408
  4. BEOVU [Suspect]
     Active Substance: BROLUCIZUMAB-DBLL
     Dosage: 6 MG
     Route: 031
     Dates: start: 20220603, end: 20220603
  5. BEOVU [Suspect]
     Active Substance: BROLUCIZUMAB-DBLL
     Dosage: 6 MG (EVERY 8 WEEKS)
     Route: 065
  6. LEVOSTA [Concomitant]
     Indication: Product used for unknown indication
     Dosage: 1 DRP (4) (ROUTE: EYE DROP)
     Route: 047
     Dates: start: 20220211, end: 20220213
  7. LEVOSTA [Concomitant]
     Dosage: 1 DRP (4) (ROUTE: EYE DROP)
     Route: 047
     Dates: start: 20220408, end: 20220410
  8. HYALQ [Concomitant]
     Indication: Dry eye
     Dosage: 0.35 ML (FORMULATION OPHTHALMIC SOLUTION)
     Route: 065
     Dates: start: 20200603

REACTIONS (4)
  - Macular degeneration [Not Recovered/Not Resolved]
  - Maculopathy [Not Recovered/Not Resolved]
  - Foveal degeneration [Not Recovered/Not Resolved]
  - Blindness [Not Recovered/Not Resolved]

NARRATIVE: CASE EVENT DATE: 20220806
